FAERS Safety Report 5202499-X (Version None)
Quarter: 2006Q4

REPORT INFORMATION
  Report Type: 
  Country: None (occurrence: None)
  Receive Date: 20061018
  Receipt Date: 20060731
  Transmission Date: 20070319
  Serious: No
  Sender: FDA-Public Use
  Company Number: 2006070261

PATIENT
  Age: 84 Year
  Sex: Female

DRUGS (1)
  1. MACUGEN [Suspect]
     Indication: MACULAR DEGENERATION
     Dosage: (1 IN 6 WK)
     Dates: start: 20060217

REACTIONS (1)
  - EYE HAEMORRHAGE [None]
